FAERS Safety Report 20589707 (Version 1)
Quarter: 2022Q1

REPORT INFORMATION
  Report Type: Spontaneous
  Country: US (occurrence: None)
  Receive Date: 20220311
  Receipt Date: 20220311
  Transmission Date: 20220423
  Serious: No
  Sender: FDA-Public Use
  Company Number: None

PATIENT
  Sex: Female
  Weight: 106.2 kg

DRUGS (3)
  1. DIETHYLPROPION [Suspect]
     Active Substance: DIETHYLPROPION
     Indication: Medical diet
     Dosage: FREQUENCY : DAILY;?
     Route: 048
     Dates: start: 20220310, end: 20220310
  2. VIIBRYD [Concomitant]
     Active Substance: VILAZODONE HYDROCHLORIDE
  3. CETIRIZINE [Concomitant]
     Active Substance: CETIRIZINE HYDROCHLORIDE

REACTIONS (3)
  - Nausea [None]
  - Diarrhoea [None]
  - Vomiting [None]
